FAERS Safety Report 22526252 (Version 1)
Quarter: 2023Q2

REPORT INFORMATION
  Report Type: Spontaneous
  Country: KR (occurrence: KR)
  Receive Date: 20230606
  Receipt Date: 20230606
  Transmission Date: 20230721
  Serious: Yes (Hospitalization)
  Sender: FDA-Public Use
  Company Number: KR-ORGANON-O2305KOR003086

PATIENT
  Age: 68 Year
  Sex: Male

DRUGS (17)
  1. COZAAR [Suspect]
     Active Substance: LOSARTAN POTASSIUM
     Dosage: UNK (FILM COATED TABLET)
     Route: 048
     Dates: start: 20160701, end: 20160829
  2. TRIAMCINOLONE ACETONIDE [Suspect]
     Active Substance: TRIAMCINOLONE ACETONIDE
     Indication: Diabetic retinopathy
     Dosage: 4 MILLIGRAM, 1 DAY
     Route: 050
     Dates: start: 20160407, end: 20160407
  3. SODIUM HYALURONATE [Concomitant]
     Active Substance: HYALURONATE SODIUM
     Indication: Disorder of globe
     Dosage: UNK (OPHTHALMIC SOLUTION) (ROUTE: EYE)
     Route: 047
     Dates: start: 20151113
  4. LINAGLIPTIN [Concomitant]
     Active Substance: LINAGLIPTIN
     Indication: Diabetes mellitus
     Dosage: UNK
     Route: 048
     Dates: start: 20161213
  5. GLICLAZIDE [Concomitant]
     Active Substance: GLICLAZIDE
     Indication: Diabetes mellitus
     Dosage: UNK
     Route: 048
     Dates: start: 20160121, end: 20161212
  6. .ALPHA.-LIPOIC ACID [Concomitant]
     Active Substance: .ALPHA.-LIPOIC ACID
     Indication: Diabetic mononeuropathy
     Dosage: UNK (SUSTAINED-RELEASE FILM-COATED TABLETS)
     Route: 048
     Dates: start: 20160308
  7. AMLODIPINE BESYLATE\VALSARTAN [Concomitant]
     Active Substance: AMLODIPINE BESYLATE\VALSARTAN
     Indication: Essential hypertension
     Dosage: UNK
     Route: 048
     Dates: start: 20161018, end: 20170410
  8. CLOPIDOGREL BISULFATE [Concomitant]
     Active Substance: CLOPIDOGREL BISULFATE
     Indication: Cardiac failure
     Dosage: UNK
     Route: 048
     Dates: start: 20160830, end: 20170327
  9. ASPIRIN [Concomitant]
     Active Substance: ASPIRIN
     Indication: Cardiac failure
     Dosage: UNK (ENTERIC-COATED FILM-COATED TABLETS)
     Route: 048
     Dates: start: 20160830, end: 20170331
  10. GABAPENTIN [Concomitant]
     Active Substance: GABAPENTIN
     Indication: Diabetic mononeuropathy
     Dosage: UNK (HARD CAPSULE, POWDER)
     Route: 048
     Dates: start: 20160121, end: 20170206
  11. CILOSTAZOL [Concomitant]
     Active Substance: CILOSTAZOL
     Dosage: UNK (UNCOATED TABLET)
     Route: 048
     Dates: start: 20160204, end: 20170829
  12. ROSUVASTATIN CALCIUM [Concomitant]
     Active Substance: ROSUVASTATIN CALCIUM
     Indication: Hyperlipidaemia
     Dosage: UNK
     Route: 048
     Dates: start: 20160701, end: 20170206
  13. TRIAMCINOLONE ACETONIDE [Concomitant]
     Active Substance: TRIAMCINOLONE ACETONIDE
     Dosage: UNK (ROUTE: EYE)
     Route: 047
     Dates: start: 20161123, end: 20161123
  14. BISOPROLOL FUMARATE [Concomitant]
     Active Substance: BISOPROLOL FUMARATE
     Indication: Prophylaxis
     Dosage: UNK
     Route: 048
     Dates: start: 20160907, end: 20160920
  15. MONTMORILLONITE [Concomitant]
     Active Substance: MONTMORILLONITE
     Indication: Diarrhoea
     Dosage: UNK
     Route: 048
     Dates: start: 20160923, end: 20160924
  16. ACETYLCYSTEINE [Concomitant]
     Active Substance: ACETYLCYSTEINE
     Indication: Prophylaxis
     Dosage: UNK (HARD CAPSULE POWDER)
     Route: 048
     Dates: start: 20160904, end: 20160906
  17. CARNITINE;CYANOCOBALAMIN;CYPROHEPTADINE;LYSINE [Concomitant]
     Indication: Prophylaxis
     Dosage: UNK (HARD CAPSULE POWDER)
     Route: 048
     Dates: start: 20160926, end: 20161021

REACTIONS (1)
  - Cataract [Recovered/Resolved]

NARRATIVE: CASE EVENT DATE: 20170104
